FAERS Safety Report 10381310 (Version 1)
Quarter: 2014Q3

REPORT INFORMATION
  Report Type: Spontaneous
  Country: PL (occurrence: PL)
  Receive Date: 20140813
  Receipt Date: 20140813
  Transmission Date: 20150326
  Serious: Yes (Hospitalization)
  Sender: FDA-Public Use
  Company Number: PL-ACTAVIS-2014-17268

PATIENT
  Age: 31 Year
  Sex: Male
  Weight: 72 kg

DRUGS (2)
  1. IFENIN [Suspect]
     Active Substance: IBUPROFEN
     Indication: NASOPHARYNGITIS
  2. IFENIN [Suspect]
     Active Substance: IBUPROFEN
     Indication: HEADACHE
     Dosage: 400 MG, DAILY (IFENIN FORTE)
     Route: 048
     Dates: start: 20140522, end: 20140522

REACTIONS (3)
  - Rash erythematous [Unknown]
  - Oedema [None]
  - Erythema [None]

NARRATIVE: CASE EVENT DATE: 20140522
